FAERS Safety Report 17896365 (Version 1)
Quarter: 2020Q2

REPORT INFORMATION
  Report Type: Spontaneous
  Country: CA (occurrence: CA)
  Receive Date: 20200615
  Receipt Date: 20200615
  Transmission Date: 20200714
  Serious: Yes (Hospitalization, Other)
  Sender: FDA-Public Use
  Company Number: CA-PFIZER INC-2020084500

PATIENT
  Age: 86 Year
  Sex: Female

DRUGS (3)
  1. PREGABALIN. [Concomitant]
     Active Substance: PREGABALIN
  2. TYLENOL [Concomitant]
     Active Substance: ACETAMINOPHEN
  3. XELJANZ [Suspect]
     Active Substance: TOFACITINIB CITRATE
     Indication: RHEUMATOID ARTHRITIS
     Dosage: 5MG/BID (2X/DAY)
     Route: 048
     Dates: start: 20200103

REACTIONS (4)
  - Fall [Unknown]
  - Condition aggravated [Not Recovered/Not Resolved]
  - Foot fracture [Unknown]
  - Anaemia [Unknown]
